FAERS Safety Report 16128152 (Version 1)
Quarter: 2019Q1

REPORT INFORMATION
  Report Type: Spontaneous
  Country: PT (occurrence: PT)
  Receive Date: 20190328
  Receipt Date: 20190328
  Transmission Date: 20190418
  Serious: Yes (Other)
  Sender: FDA-Public Use
  Company Number: PT-BAYER-2019-058918

PATIENT
  Age: 42 Year
  Sex: Female

DRUGS (5)
  1. FLUTICASONE;VILANTEROL [Concomitant]
     Indication: ASTHMA
     Dosage: 1 DF, UNK
     Route: 055
  2. ACETYLSALICYLIC ACID (PAIN AND FEVER) [Suspect]
     Active Substance: ASPIRIN
     Route: 048
  3. EBASTINE [Concomitant]
     Active Substance: EBASTINE
     Indication: URTICARIA PRESSURE
     Dosage: 1 DF, UNK
     Route: 048
  4. PULMICORT NASAL AQUA [Concomitant]
     Active Substance: BUDESONIDE
     Dosage: UNK
     Route: 055
  5. TAMOXIFEN [Concomitant]
     Active Substance: TAMOXIFEN
     Indication: BREAST NEOPLASM
     Route: 048

REACTIONS (3)
  - Wheezing [Recovered/Resolved]
  - Lip oedema [Recovered/Resolved]
  - Respiratory distress [Recovered/Resolved]
